FAERS Safety Report 10251388 (Version 1)
Quarter: 2014Q2

REPORT INFORMATION
  Report Type: Report from Study
  Country: US (occurrence: US)
  Receive Date: 20140622
  Receipt Date: 20140622
  Transmission Date: 20141212
  Serious: Yes (Hospitalization)
  Sender: FDA-Public Use
  Company Number: US-JNJFOC-20140611929

PATIENT
  Age: 26 Year
  Sex: Male
  Weight: 62.8 kg

DRUGS (1)
  1. ACETAMINOPHEN [Suspect]
     Indication: SUICIDE ATTEMPT
     Dosage: 50 TABLETS
     Route: 048

REACTIONS (5)
  - Intentional overdose [Unknown]
  - Liver function test abnormal [Unknown]
  - Prothrombin time prolonged [Unknown]
  - Vomiting [Recovered/Resolved]
  - Abdominal pain [Recovered/Resolved]
